FAERS Safety Report 21252736 (Version 1)
Quarter: 2022Q3

REPORT INFORMATION
  Report Type: Spontaneous
  Country: CN (occurrence: CN)
  Receive Date: 20220825
  Receipt Date: 20220825
  Transmission Date: 20221026
  Serious: Yes (Other)
  Sender: FDA-Public Use
  Company Number: None

PATIENT
  Age: 28 Year
  Sex: Male
  Weight: 54 kg

DRUGS (4)
  1. MESNA [Suspect]
     Active Substance: MESNA
     Indication: Alveolar rhabdomyosarcoma
     Dosage: MAID REGIMEN
     Route: 065
     Dates: start: 20220728
  2. IFOSFAMIDE [Suspect]
     Active Substance: IFOSFAMIDE
     Indication: Alveolar rhabdomyosarcoma
     Dosage: 3.4 G, QD
     Route: 041
     Dates: start: 20220728, end: 20220728
  3. EPIRUBICIN HYDROCHLORIDE [Suspect]
     Active Substance: EPIRUBICIN HYDROCHLORIDE
     Indication: Alveolar rhabdomyosarcoma
     Dosage: 35 MG, QD
     Route: 041
     Dates: start: 20220728, end: 20220728
  4. DACARBAZINE [Suspect]
     Active Substance: DACARBAZINE
     Indication: Alveolar rhabdomyosarcoma
     Dosage: 430 MG, QD
     Route: 041
     Dates: start: 20220727, end: 20220727

REACTIONS (1)
  - Myelosuppression [Recovering/Resolving]

NARRATIVE: CASE EVENT DATE: 20220806
